FAERS Safety Report 23423321 (Version 1)
Quarter: 2024Q1

REPORT INFORMATION
  Report Type: Spontaneous
  Country: US (occurrence: None)
  Receive Date: 20240119
  Receipt Date: 20240119
  Transmission Date: 20240409
  Serious: Yes (Hospitalization)
  Sender: FDA-Public Use
  Company Number: None

PATIENT
  Age: 22 Year
  Sex: Female
  Weight: 72.8 kg

DRUGS (1)
  1. ESCITALOPRAM [Suspect]
     Active Substance: ESCITALOPRAM OXALATE
     Dosage: FREQUENCY : DAILY;?
     Route: 048

REACTIONS (5)
  - Constipation [None]
  - Therapy change [None]
  - Anal fissure [None]
  - Urinary tract obstruction [None]
  - Drug ineffective [None]

NARRATIVE: CASE EVENT DATE: 20240118
